FAERS Safety Report 8973975 (Version 1)
Quarter: 2012Q4

REPORT INFORMATION
  Report Type: 
  Country: US (occurrence: US)
  Receive Date: 20121218
  Receipt Date: 20121218
  Transmission Date: 20130627
  Serious: Yes (Other)
  Sender: FDA-Public Use
  Company Number: US-BRISTOL-MYERS SQUIBB COMPANY-16395170

PATIENT
  Age: 6 Year
  Sex: Male

DRUGS (3)
  1. ABILIFY [Suspect]
     Indication: AFFECTIVE DISORDER
     Dosage: initial dose 2mg; increased to 5mg on Jan2012
Increased to 2.5mg on 23NOv
     Route: 048
     Dates: start: 20111109
  2. ABILIFY [Suspect]
     Indication: IRRITABILITY
     Dosage: initial dose 2mg; increased to 5mg on Jan2012
Increased to 2.5mg on 23NOv
     Route: 048
     Dates: start: 20111109
  3. ABILIFY [Suspect]
     Indication: MOOD SWINGS
     Dosage: initial dose 2mg; increased to 5mg on Jan2012
Increased to 2.5mg on 23NOv
     Route: 048
     Dates: start: 20111109

REACTIONS (1)
  - Aggression [Recovering/Resolving]
